FAERS Safety Report 8997176 (Version 1)
Quarter: 2013Q1

REPORT INFORMATION
  Report Type: Spontaneous
  Country: US (occurrence: None)
  Receive Date: 20130102
  Receipt Date: 20130102
  Transmission Date: 20140127
  Serious: Yes (Hospitalization)
  Sender: FDA-Public Use
  Company Number: None

PATIENT
  Age: 50 Year
  Sex: Male
  Weight: 62.5 kg

DRUGS (3)
  1. OFATUMUMAB [Suspect]
     Indication: B-CELL LYMPHOMA
     Route: 042
     Dates: start: 20121006
  2. VALTREX [Concomitant]
  3. ZYPREXA [Concomitant]

REACTIONS (8)
  - Malaise [None]
  - Anxiety [None]
  - Agitation [None]
  - Headache [None]
  - Nasal congestion [None]
  - Photophobia [None]
  - Pyrexia [None]
  - Viral infection [None]
